FAERS Safety Report 9347215 (Version 2)
Quarter: 2013Q2

REPORT INFORMATION
  Report Type: Spontaneous
  Country: DZ (occurrence: DZ)
  Receive Date: 20130613
  Receipt Date: 20130624
  Transmission Date: 20140414
  Serious: Yes (Hospitalization)
  Sender: FDA-Public Use
  Company Number: DZ-PFIZER INC-2013178730

PATIENT
  Age: 50 Year
  Sex: Female

DRUGS (4)
  1. RELPAX [Suspect]
     Indication: MIGRAINE
     Dosage: 40 MG, SINGLE
     Route: 048
     Dates: start: 201302, end: 201302
  2. PROGYNOVA [Concomitant]
     Dosage: 1TABX/DAY, CYCLIC
     Route: 048
  3. DUFASTON [Concomitant]
     Dosage: 1TABX/DAY, CYCLIC
     Route: 048
  4. TOTINAL [Concomitant]
     Dosage: 1 MG, 1X/DAY BEDTIME

REACTIONS (8)
  - Dyspnoea [Recovered/Resolved]
  - Asphyxia [Recovered/Resolved]
  - Hypertension [Recovered/Resolved]
  - Tachycardia [Recovered/Resolved]
  - Muscle spasms [Recovered/Resolved]
  - Hypoaesthesia [Recovered/Resolved]
  - Pain in extremity [Recovered/Resolved]
  - Asthenia [Recovered/Resolved]
